FAERS Safety Report 11401965 (Version 3)
Quarter: 2016Q1

REPORT INFORMATION
  Report Type: Report from Study
  Country: US (occurrence: US)
  Receive Date: 20150821
  Receipt Date: 20160211
  Transmission Date: 20160525
  Serious: No
  Sender: FDA-Public Use
  Company Number: PHEH2015US013769

PATIENT
  Sex: Female
  Weight: 102.4 kg

DRUGS (1)
  1. GILENYA [Suspect]
     Active Substance: FINGOLIMOD HYDROCHLORIDE
     Indication: MULTIPLE SCLEROSIS
     Dosage: 0.5 MG, QD
     Route: 048
     Dates: start: 20150518, end: 201507

REACTIONS (3)
  - Depression [Not Recovered/Not Resolved]
  - Somnolence [Unknown]
  - Fatigue [Not Recovered/Not Resolved]
